FAERS Safety Report 7902267-1 (Version None)
Quarter: 2011Q4

REPORT INFORMATION
  Report Type: 
  Country: None (occurrence: None)
  Receive Date: 20111108
  Receipt Date: 20111026
  Transmission Date: 20120403
  Serious: Yes (Other)
  Sender: FDA-Public Use
  Company Number: PHHY2011DK62681

PATIENT
  Sex: Female
  Weight: 73.6 kg

DRUGS (34)
  1. IMOVANE [Suspect]
     Dosage: 7.5 MG, QD
     Dates: start: 20060405, end: 20110401
  2. PAROXETINE HCL [Suspect]
     Indication: DEPRESSION
     Dates: start: 20090223
  3. MIRTAZAPINE [Suspect]
     Indication: ANXIETY
     Dates: start: 20060320
  4. MIANSERIN [Suspect]
     Dates: start: 20080925, end: 20081201
  5. MIRTAZAPINE [Suspect]
     Indication: ANXIETY
     Dosage: UNK UKN, UNK
     Dates: start: 20060320
  6. TRAMADOL HCL [Suspect]
     Indication: NECK PAIN
     Dosage: UNK UKN, UNK
     Dates: start: 20060816, end: 20061201
  7. SEROXAT ^CIBA-GEIGY^ [Concomitant]
     Dates: end: 20100101
  8. PAROXETINE HCL [Concomitant]
     Dates: end: 20100101
  9. MIGEA RAPID [Suspect]
     Indication: MIGRAINE
     Dosage: UNK UKN, UNK
     Dates: start: 20100618
  10. EFFEXOR [Suspect]
     Dosage: 150 MG/DAY
     Dates: end: 20081201
  11. MAGNESIUMHYDROXID [Concomitant]
     Dosage: DOSIS 6-8 TABLETTER DAGLIGT.
     Route: 048
  12. MIANSERIN [Suspect]
     Indication: DEPRESSION
     Dosage: UNK UKN, UNK
     Dates: start: 20080925
  13. TRUXAL [Suspect]
     Dates: start: 20061201, end: 20110801
  14. PAMOL [Concomitant]
     Indication: PAIN
     Dosage: UNK UKN, UNK
     Dates: start: 20061201
  15. MAGNESIUMHYDROXID [Concomitant]
     Dosage: UNK
     Route: 048
  16. SEROXAT(PAROXETIN CR) [Concomitant]
     Dates: end: 20100101
  17. TRUXAL [Suspect]
     Indication: PSYCHOTIC DISORDER
     Dosage: UNK UKN, UNK
     Dates: start: 20061201, end: 20110801
  18. NORTRIPTYLINE HCL [Suspect]
     Dates: start: 20090223, end: 20110701
  19. IMOVANE [Suspect]
     Indication: INSOMNIA
     Dosage: 7.5 MG, QD
     Dates: start: 20060406
  20. ACETAMINOPHEN [Concomitant]
     Indication: NECK PAIN
     Dosage: UNK UKN, UNK
     Dates: start: 20060816
  21. EFFEXOR [Suspect]
     Dates: start: 20060928, end: 20081201
  22. TRAMADOL HCL [Suspect]
     Indication: HEADACHE
  23. IBRUPROFEN [Suspect]
     Dosage: 600 MG, TID
  24. ACETAMINOPHEN [Concomitant]
  25. MAGNESIUM HYDROXIDE [Concomitant]
     Route: 048
  26. PAROXETINE HCL [Suspect]
     Indication: DEPRESSION
     Dosage: UNK UKN, UNK
     Dates: start: 20090223
  27. NORTRIPTYLINE HCL [Suspect]
     Indication: DEPRESSION
     Dosage: UNK UKN, UNK
     Dates: start: 20090223
  28. IBRUPROFEN [Suspect]
     Indication: NECK PAIN
     Dates: start: 20041201, end: 20110301
  29. EFFEXOR [Suspect]
     Dosage: 75 MG/DAY
     Dates: start: 20060928
  30. TRAMADOL HCL [Suspect]
     Indication: HEADACHE
     Dates: start: 20060816, end: 20061201
  31. IBRUPROFEN [Suspect]
     Indication: HEADACHE
     Dosage: UNK UKN, UNK
     Dates: start: 20060816
  32. IBRUPROFEN [Suspect]
     Dosage: 800 MG, TID (SHORTER PERIOD
  33. IBUPROFEN [Concomitant]
     Indication: PAIN
     Dosage: UNK UKN, UNK
     Dates: start: 20061201
  34. MAGNESIUMHYDROXID [Concomitant]
     Route: 048

REACTIONS (11)
  - GASTROOESOPHAGEAL REFLUX DISEASE [None]
  - FLATULENCE [None]
  - RECTAL HAEMORRHAGE [None]
  - OEDEMA [None]
  - CONSTIPATION [None]
  - DYSPEPSIA [None]
  - OEDEMA PERIPHERAL [None]
  - SWELLING FACE [None]
  - HAEMORRHOIDS [None]
  - ABDOMINAL DISTENSION [None]
  - FAECES HARD [None]
